FAERS Safety Report 9413338 (Version 1)
Quarter: 2013Q2

REPORT INFORMATION
  Report Type: Spontaneous
  Country: KR (occurrence: None)
  Receive Date: 20130611
  Receipt Date: 20130611
  Transmission Date: 20140414
  Serious: Yes (Hospitalization, Other)
  Sender: FDA-Public Use
  Company Number: JP-2013-10353

PATIENT
  Age: 67 Year
  Sex: Male
  Weight: 65.5 kg

DRUGS (15)
  1. OPC-13013 (CILOSTAZOL) TABLET [Suspect]
     Indication: CORONARY ARTERY DISEASE
     Route: 048
     Dates: start: 20100607, end: 20100906
  2. OPC-13013 (CILOSTAZOL) TABLET [Suspect]
     Indication: CORONARY ARTERIAL STENT INSERTION
     Route: 048
     Dates: start: 20100607, end: 20100906
  3. ASPIRIN (ACETYLSALICYLIC ACID) TABLET [Suspect]
     Indication: CORONARY ARTERIAL STENT INSERTION
     Route: 048
     Dates: start: 20100607
  4. ASPIRIN (ACETYLSALICYLIC ACID) TABLET [Suspect]
     Indication: CORONARY ARTERY DISEASE
     Route: 048
     Dates: start: 20100607
  5. ASPIRIN (ACETYLSALICYLIC ACID) TABLET [Suspect]
     Indication: PLATELET AGGREGATION
     Route: 048
     Dates: start: 20100607
  6. CLOPIDOGREL (CLOPIDOGREL) TABLET [Suspect]
     Indication: CORONARY ARTERIAL STENT INSERTION
     Route: 048
     Dates: start: 20110107
  7. CLOPIDOGREL (CLOPIDOGREL) TABLET [Suspect]
     Indication: CORONARY ARTERY DISEASE
     Route: 048
     Dates: start: 20110107
  8. CLOPIDOGREL (CLOPIDOGREL) TABLET [Suspect]
     Indication: ARTERIOSCLEROSIS
     Route: 048
     Dates: start: 20110107
  9. SIGMART (NICORANDI) [Concomitant]
  10. ATORVASTATIN CALCIUM (ATORVASTATIN CALCIUM) [Concomitant]
  11. DILATREND (CARVEDILOL) [Concomitant]
  12. MICARDIS (TELMISARTAN) [Concomitant]
  13. PIOGLITAZONE HYDROCHLORIDE (PIOGLITAZONE HYDROCHLORIDE) [Concomitant]
  14. GILMEL (GLIMEPIRIDE) [Concomitant]
  15. DIABEX (METFORMIN HYDROCHLORIDE) [Concomitant]

REACTIONS (1)
  - Coronary artery restenosis [None]
